FAERS Safety Report 4628841-6 (Version None)
Quarter: 2005Q2

REPORT INFORMATION
  Report Type: 
  Country: None (occurrence: None)
  Receive Date: 20050406
  Receipt Date: 20050322
  Transmission Date: 20051028
  Serious: Yes (Other)
  Sender: FDA-Public Use
  Company Number: 2004018430

PATIENT
  Age: 5 Year
  Sex: Female

DRUGS (5)
  1. GEODON [Suspect]
     Indication: AFFECTIVE DISORDER
     Dosage: 120 MG (2 IN 1 D); ORAL
     Route: 048
     Dates: start: 20021206, end: 20021207
  2. GEODON [Suspect]
     Indication: AGGRESSION
     Dosage: 120 MG (2 IN 1 D); ORAL
     Route: 048
     Dates: start: 20021206, end: 20021207
  3. OBETROL (AMFETAMINE ASPARTATE, AMFETAMINE SULFATE, DEXAMFETAMINE SACCH [Concomitant]
  4. OXCARBAZEPINE [Concomitant]
  5. GUANFACINE HYDROCHLORIDE [Concomitant]

REACTIONS (9)
  - CONFUSIONAL STATE [None]
  - CONVULSION [None]
  - DYSTONIA [None]
  - FALL [None]
  - HEART RATE ABNORMAL [None]
  - INCONTINENCE [None]
  - MUSCLE TIGHTNESS [None]
  - OCULOGYRATION [None]
  - SEDATION [None]
